FAERS Safety Report 23089406 (Version 1)
Quarter: 2023Q4

REPORT INFORMATION
  Report Type: Spontaneous
  Country: FR (occurrence: FR)
  Receive Date: 20231020
  Receipt Date: 20231020
  Transmission Date: 20240109
  Serious: Yes (Death, Other)
  Sender: FDA-Public Use
  Company Number: FR-EMA-2023914-AUTODUP-1694721549546

PATIENT
  Age: 38 Year
  Sex: Male

DRUGS (16)
  1. CONCERTA [Suspect]
     Active Substance: METHYLPHENIDATE HYDROCHLORIDE
     Indication: Substance use
     Dosage: UNK
     Route: 048
  2. COCAINE [Suspect]
     Active Substance: COCAINE
     Indication: Drug abuse
     Dosage: UNK
     Route: 065
  3. CANNABIS SATIVA SUBSP. INDICA TOP [Suspect]
     Active Substance: CANNABIS SATIVA SUBSP. INDICA TOP
     Indication: Product used for unknown indication
     Dosage: UNK
     Route: 065
  4. MORPHINE SULFATE [Suspect]
     Active Substance: MORPHINE SULFATE
     Indication: Drug abuse
     Dosage: UNK
     Route: 065
  5. NORDAZEPAM [Suspect]
     Active Substance: NORDAZEPAM
     Indication: Drug abuse
     Dosage: UNK
     Route: 065
  6. BENZOYLECGONINE [Suspect]
     Active Substance: BENZOYLECGONINE
     Indication: Drug abuse
     Dosage: UNK
     Route: 065
  7. HEROIN [Suspect]
     Active Substance: DIAMORPHINE
     Indication: Product used for unknown indication
     Dosage: UNK
     Route: 065
  8. METHADONE [Suspect]
     Active Substance: METHADONE HYDROCHLORIDE
     Indication: Drug abuse
     Dosage: UNK
     Route: 065
  9. AMISULPRIDE [Suspect]
     Active Substance: AMISULPRIDE
     Indication: Drug abuse
     Dosage: UNK
     Route: 065
  10. OXAZEPAM [Suspect]
     Active Substance: OXAZEPAM
     Indication: Drug abuse
     Dosage: UNK
     Route: 065
  11. ALCOHOL [Suspect]
     Active Substance: ALCOHOL
     Indication: Product used for unknown indication
     Dosage: UNK
     Route: 065
  12. METHYL ALCOHOL [Suspect]
     Active Substance: METHYL ALCOHOL
     Indication: Product used for unknown indication
     Dosage: UNK
     Route: 065
  13. DIAMORPHINE [Suspect]
     Active Substance: DIAMORPHINE
     Indication: Product used for unknown indication
     Dosage: UNK
     Route: 065
  14. MORPHINE [Suspect]
     Active Substance: MORPHINE
     Indication: Drug abuse
     Dosage: UNK
     Route: 065
  15. PHENCYCLIDINE [Suspect]
     Active Substance: PHENCYCLIDINE
     Indication: Drug abuse
     Dosage: UNK
     Route: 065
  16. TRAMADOL HYDROCHLORIDE [Suspect]
     Active Substance: TRAMADOL HYDROCHLORIDE
     Indication: Drug abuse
     Route: 065

REACTIONS (5)
  - Drug abuse [Fatal]
  - Toxicity to various agents [Fatal]
  - Toxicity to various agents [Fatal]
  - Respiratory depression [Fatal]
  - Drug dependence [Fatal]
